FAERS Safety Report 14880270 (Version 1)
Quarter: 2018Q2

REPORT INFORMATION
  Report Type: Spontaneous
  Country: CA (occurrence: CA)
  Receive Date: 20180511
  Receipt Date: 20180511
  Transmission Date: 20180711
  Serious: Yes (Other)
  Sender: FDA-Public Use
  Company Number: CA-BAYER-2018-085694

PATIENT
  Age: 47 Year
  Sex: Female
  Weight: 61.22 kg

DRUGS (2)
  1. MIRENA [Suspect]
     Active Substance: LEVONORGESTREL
     Indication: CONTRACEPTION
     Dosage: 20 MCG/24HR, CONT
     Route: 015
  2. MIRENA [Suspect]
     Active Substance: LEVONORGESTREL

REACTIONS (20)
  - Anxiety [None]
  - Blood pressure decreased [None]
  - Eczema [None]
  - Myalgia [None]
  - Nausea [None]
  - Vertigo [None]
  - Dizziness [None]
  - Weight increased [None]
  - Back pain [None]
  - Breast pain [None]
  - Vomiting [None]
  - Neurodermatitis [None]
  - Arthralgia [None]
  - Panic attack [None]
  - Amnesia [None]
  - Decreased interest [None]
  - Depression [None]
  - Irritability [None]
  - Fatigue [None]
  - Urinary incontinence [None]
